FAERS Safety Report 24876957 (Version 2)
Quarter: 2025Q1

REPORT INFORMATION
  Report Type: Report from Study
  Country: NL (occurrence: NL)
  Receive Date: 20250123
  Receipt Date: 20250208
  Transmission Date: 20250409
  Serious: Yes (Life-Threatening, Hospitalization, Other)
  Sender: AUROBINDO
  Company Number: NL-EMA-DD-20250109-7482645-050407

PATIENT
  Age: 70 Year
  Sex: Male

DRUGS (1)
  1. AMOXICILLIN [Suspect]
     Active Substance: AMOXICILLIN
     Indication: Product used for unknown indication
     Route: 065

REACTIONS (9)
  - Toxic epidermal necrolysis [Unknown]
  - Wound infection staphylococcal [Unknown]
  - Ileus [Unknown]
  - Mechanical ventilation [Unknown]
  - Pyrexia [Unknown]
  - Stomatitis [Unknown]
  - Conjunctivitis [Unknown]
  - Pharyngeal inflammation [Unknown]
  - Haemophilus infection [Unknown]
